FAERS Safety Report 19293041 (Version 1)
Quarter: 2021Q2

REPORT INFORMATION
  Report Type: Spontaneous
  Country: US (occurrence: US)
  Receive Date: 20210522
  Receipt Date: 20210522
  Transmission Date: 20210717
  Serious: Yes (Hospitalization)
  Sender: FDA-Public Use
  Company Number: None

PATIENT
  Age: 57 Year
  Sex: Male
  Weight: 75.8 kg

DRUGS (3)
  1. OXALIPLATIN 65MG/M2 Q14 DAYS [Concomitant]
     Dates: start: 20210517
  2. NIVOLUMAB [Suspect]
     Active Substance: NIVOLUMAB
     Indication: NON-SMALL CELL LUNG CANCER
     Dosage: OTHER FREQUENCY:Q14 DAYS;?
     Route: 042
     Dates: start: 20210517
  3. IPILIMUMAB [Suspect]
     Active Substance: IPILIMUMAB
     Indication: NON-SMALL CELL LUNG CANCER
     Dosage: ?          OTHER FREQUENCY:Q6 WEEKS;?
     Route: 042
     Dates: start: 20210517

REACTIONS (4)
  - Chest pain [None]
  - Dyspnoea exertional [None]
  - Dizziness [None]
  - Fatigue [None]

NARRATIVE: CASE EVENT DATE: 20210521
